FAERS Safety Report 4614997-8 (Version None)
Quarter: 2005Q1

REPORT INFORMATION
  Report Type: 
  Country: None (occurrence: None)
  Receive Date: 20050322
  Receipt Date: 20050310
  Transmission Date: 20050727
  Serious: Yes (Death)
  Sender: FDA-Public Use
  Company Number: US-JNJFOC-20050303777

PATIENT
  Sex: Male

DRUGS (13)
  1. EXTRA STRENGTH TYLENOL [Suspect]
     Route: 049
  2. EXTRA STRENGTH TYLENOL [Suspect]
     Indication: PAIN
     Dosage: ^COUPLE TABLETS,^ BID, PO, PRN
     Route: 049
  3. ASPIRIN [Suspect]
     Indication: DRUG USE FOR UNKNOWN INDICATION
  4. NSAID [Suspect]
     Indication: DRUG USE FOR UNKNOWN INDICATION
  5. ATIVAN [Concomitant]
     Route: 049
  6. RESTORIL [Concomitant]
     Dosage: 1, PO, PM
     Route: 049
  7. VICODIN [Concomitant]
  8. VICODIN [Concomitant]
  9. PERCOCET [Concomitant]
  10. PERCOCET [Concomitant]
  11. BUFFERIN [Concomitant]
  12. BUFFERIN [Concomitant]
  13. BUFFERIN [Concomitant]
     Dosage: PRN, SINCE BEFORE 1994

REACTIONS (5)
  - CHROMATURIA [None]
  - DISCOMFORT [None]
  - GASTRIC ULCER [None]
  - HEPATIC CANCER METASTATIC [None]
  - ULCER [None]
